FAERS Safety Report 25036243 (Version 1)
Quarter: 2025Q1

REPORT INFORMATION
  Report Type: Spontaneous
  Country: HU (occurrence: HU)
  Receive Date: 20250304
  Receipt Date: 20250304
  Transmission Date: 20250408
  Serious: Yes (Other)
  Sender: ROCHE
  Company Number: HU-ROCHE-10000216957

PATIENT
  Sex: Male

DRUGS (1)
  1. TAMIFLU [Suspect]
     Active Substance: OSELTAMIVIR PHOSPHATE
     Indication: Influenza
     Route: 065

REACTIONS (7)
  - Dizziness [Unknown]
  - Hot flush [Unknown]
  - Vomiting [Unknown]
  - Disorientation [Unknown]
  - Catatonia [Unknown]
  - Anxiety [Unknown]
  - Hyperhidrosis [Unknown]
